FAERS Safety Report 10249339 (Version 4)
Quarter: 2014Q3

REPORT INFORMATION
  Report Type: Spontaneous
  Country: JP (occurrence: JP)
  Receive Date: 20140620
  Receipt Date: 20140721
  Transmission Date: 20150326
  Serious: Yes (Hospitalization, Other)
  Sender: FDA-Public Use
  Company Number: JP-PFIZER INC-2014168943

PATIENT
  Age: 54 Year
  Sex: Male
  Weight: 62.2 kg

DRUGS (22)
  1. AMITIZA [Concomitant]
     Active Substance: LUBIPROSTONE
     Indication: CONSTIPATION
     Dosage: 24 UG, 2X/DAY
     Route: 048
     Dates: start: 20140503
  2. PROGRAF [Concomitant]
     Active Substance: TACROLIMUS\TACROLIMUS ANHYDROUS
     Indication: POLYARTHRITIS
     Dosage: 1 MG, 2X/DAY
     Route: 048
     Dates: start: 20140503
  3. LYRICA [Suspect]
     Active Substance: PREGABALIN
     Dosage: 50 MG, 1X/DAY
     Dates: start: 20140602, end: 20140606
  4. BAYASPIRIN [Concomitant]
     Active Substance: ASPIRIN
     Indication: MYOCARDIAL INFARCTION
     Dosage: 100 MG, 1X/DAY
     Route: 048
     Dates: start: 20140503
  5. PLAVIX [Concomitant]
     Active Substance: CLOPIDOGREL BISULFATE
     Indication: CORONARY ARTERIAL STENT INSERTION
     Dosage: 75 MG, 1X/DAY
     Route: 048
     Dates: start: 20140503
  6. REBAMIPIDE [Concomitant]
     Active Substance: REBAMIPIDE
     Indication: GASTRITIS
     Dosage: 100 MG, 2X/DAY
     Route: 048
     Dates: start: 20140503
  7. ARTIST [Concomitant]
     Active Substance: CARVEDILOL
     Indication: MYOCARDIAL INFARCTION
     Dosage: 2.5 MG, ALTERNATE DAY
     Route: 048
     Dates: start: 20140503
  8. FRANDOL [Concomitant]
     Active Substance: ISOSORBIDE DINITRATE
     Indication: MYOCARDIAL INFARCTION
     Dosage: 40 MG, 1X/DAY
     Route: 062
     Dates: end: 20140530
  9. RISUMIC [Concomitant]
     Active Substance: AMEZINIUM METILSULFATE
     Indication: PROCEDURAL HYPOTENSION
     Dosage: 10 MG, 3X/WEEK
     Route: 048
     Dates: start: 20140503
  10. LANSOPRAZOLE. [Concomitant]
     Active Substance: LANSOPRAZOLE
     Indication: GASTRIC ULCER
     Dosage: 15 MG, 1X/DAY
     Route: 048
     Dates: start: 20140503
  11. LASIX [Concomitant]
     Active Substance: FUROSEMIDE
     Indication: RENAL FAILURE
     Dosage: 40 MG, 1X/DAY
     Route: 048
     Dates: start: 20140503
  12. CALTAN [Concomitant]
     Active Substance: CALCIUM CARBONATE
     Indication: HYPERPHOSPHATAEMIA
     Dosage: 500 MG, 4X/DAY
     Route: 048
     Dates: end: 20140608
  13. LYRICA [Suspect]
     Active Substance: PREGABALIN
     Indication: INTERVERTEBRAL DISC PROTRUSION
     Dosage: 75 MG, 2X/DAY
     Route: 048
     Dates: start: 20140509
  14. TRAMCET [Suspect]
     Active Substance: ACETAMINOPHEN\TRAMADOL
     Indication: INTERVERTEBRAL DISC PROTRUSION
     Dosage: 3 DF, DAILY
     Route: 048
     Dates: start: 20140509, end: 20140529
  15. TRAMCET [Suspect]
     Active Substance: ACETAMINOPHEN\TRAMADOL
     Indication: BACK PAIN
  16. LASIX [Concomitant]
     Active Substance: FUROSEMIDE
     Indication: CARDIAC FAILURE
  17. L CARTIN FF [Concomitant]
     Indication: RENAL FAILURE
     Dosage: 300 MG, 2X/DAY
     Route: 048
     Dates: end: 20140608
  18. LYRICA [Suspect]
     Active Substance: PREGABALIN
     Indication: BACK PAIN
     Dosage: 100 MG, 1X/DAY
     Dates: start: 20140530
  19. ROSEOL [Concomitant]
     Active Substance: LOXOPROFEN SODIUM
     Indication: BACK PAIN
     Dosage: 60 MG, 2X/DAY
     Route: 048
     Dates: start: 20140510
  20. YOUPIS [Concomitant]
     Indication: CONSTIPATION
     Dosage: 2.5 MG, 2X/DAY
     Route: 048
     Dates: start: 20140503
  21. HERBAL NOS [Concomitant]
     Active Substance: HERBALS
     Indication: MYALGIA
     Dosage: 2 G, 2X/DAY
     Route: 048
     Dates: end: 20140520
  22. FOSRENOL [Concomitant]
     Active Substance: LANTHANUM CARBONATE
     Indication: HYPERPHOSPHATAEMIA
     Dosage: 250 MG, 6X/DAY
     Route: 048
     Dates: end: 20140608

REACTIONS (5)
  - Procedural hypotension [Recovering/Resolving]
  - Orthostatic hypotension [Recovering/Resolving]
  - Blood urea increased [Unknown]
  - Dizziness [Unknown]
  - Blood creatinine increased [Unknown]

NARRATIVE: CASE EVENT DATE: 20140510
